FAERS Safety Report 16739221 (Version 1)
Quarter: 2019Q3

REPORT INFORMATION
  Report Type: Spontaneous
  Country: US (occurrence: US)
  Receive Date: 20190826
  Receipt Date: 20190826
  Transmission Date: 20191005
  Serious: No
  Sender: FDA-Public Use
  Company Number: US-OREXO US, INC.-ORE201901-000001

PATIENT
  Sex: Female

DRUGS (1)
  1. ZUBSOLV [Suspect]
     Active Substance: BUPRENORPHINE HYDROCHLORIDE\NALOXONE HYDROCHLORIDE
     Route: 060
     Dates: start: 20181203

REACTIONS (6)
  - Pain in extremity [Unknown]
  - Urticaria [Unknown]
  - Joint swelling [Unknown]
  - Peripheral swelling [Unknown]
  - Rash [Unknown]
  - Pruritus [Unknown]
